FAERS Safety Report 10230612 (Version 1)
Quarter: 2014Q2

REPORT INFORMATION
  Report Type: Spontaneous
  Country: DE (occurrence: DE)
  Receive Date: 20140611
  Receipt Date: 20140611
  Transmission Date: 20141212
  Serious: Yes (Hospitalization)
  Sender: FDA-Public Use
  Company Number: DE-WATSON-2014-11878

PATIENT
  Age: 41 Year
  Sex: Female

DRUGS (5)
  1. SERTRALINE (UNKNOWN) [Suspect]
     Indication: DEPRESSION
     Dosage: 50-150 MG, UNK
     Route: 048
     Dates: start: 20130815, end: 20130916
  2. SERTRALINE (UNKNOWN) [Suspect]
     Dosage: 150 MG, DAILY
     Route: 048
     Dates: start: 20130115, end: 20130613
  3. SERTRALINE (UNKNOWN) [Suspect]
     Dosage: 100 MG, DAILY
     Route: 048
     Dates: start: 2008, end: 20130114
  4. MIRTAZAPIN [Concomitant]
     Indication: SLEEP DISORDER
     Dosage: 15 MG, DAILY
     Route: 048
     Dates: start: 201208
  5. PROMETHAZINE [Concomitant]
     Indication: PRODUCT USED FOR UNKNOWN INDICATION
     Dosage: 50 MG, QPM
     Route: 065

REACTIONS (2)
  - Incontinence [Recovered/Resolved]
  - Micturition urgency [Not Recovered/Not Resolved]
